FAERS Safety Report 23112164 (Version 3)
Quarter: 2023Q4

REPORT INFORMATION
  Report Type: Spontaneous
  Country: JP (occurrence: JP)
  Receive Date: 20231026
  Receipt Date: 20231222
  Transmission Date: 20240109
  Serious: Yes (Other)
  Sender: FDA-Public Use
  Company Number: JP-TAKEDA-2023TJP014113

PATIENT
  Age: 5 Decade
  Sex: Male

DRUGS (1)
  1. ALUNBRIG [Suspect]
     Active Substance: BRIGATINIB
     Indication: Non-small cell lung cancer
     Dosage: 180 MILLIGRAM, QD
     Route: 048
     Dates: start: 20221118

REACTIONS (3)
  - Metastases to central nervous system [Unknown]
  - Metastases to central nervous system [Recovering/Resolving]
  - Non-small cell lung cancer [Recovering/Resolving]

NARRATIVE: CASE EVENT DATE: 20230818
